FAERS Safety Report 4694831-0 (Version None)
Quarter: 2005Q2

REPORT INFORMATION
  Report Type: 
  Country: None (occurrence: None)
  Receive Date: 20050620
  Receipt Date: 20050428
  Transmission Date: 20051028
  Serious: Yes (Life-Threatening)
  Sender: FDA-Public Use
  Company Number: 2005SE02567

PATIENT
  Age: 25989 Day
  Sex: Male

DRUGS (14)
  1. BLOPRESS TABLETS 8 [Suspect]
     Indication: HYPERTENSION
     Route: 048
     Dates: start: 20040616, end: 20050108
  2. BLOPRESS TABLETS 8 [Suspect]
     Route: 048
     Dates: start: 20050118, end: 20050412
  3. LASIX [Concomitant]
     Indication: DIABETIC NEPHROPATHY
     Route: 048
     Dates: start: 20040625, end: 20050108
  4. LASIX [Concomitant]
     Route: 048
     Dates: start: 20050118
  5. TAGAMET [Concomitant]
     Indication: GASTRITIS
     Route: 048
     Dates: start: 20040625, end: 20050108
  6. TAGAMET [Concomitant]
     Route: 048
     Dates: start: 20050118, end: 20050301
  7. SELBEX [Concomitant]
     Indication: GASTRITIS
     Route: 048
     Dates: start: 20040625, end: 20050108
  8. SELBEX [Concomitant]
     Route: 048
     Dates: start: 20050118
  9. HARNAL [Concomitant]
     Indication: BENIGN PROSTATIC HYPERPLASIA
     Route: 048
     Dates: start: 20040626, end: 20050108
  10. HARNAL [Concomitant]
     Route: 048
     Dates: start: 20050118
  11. FERROMIA [Concomitant]
     Indication: IRON DEFICIENCY ANAEMIA
     Route: 048
     Dates: start: 20040708, end: 20050108
  12. FERROMIA [Concomitant]
     Route: 048
     Dates: start: 20050118, end: 20050406
  13. HALCION [Concomitant]
     Indication: INSOMNIA
     Route: 048
     Dates: start: 20040625, end: 20050108
  14. HALCION [Concomitant]
     Route: 048
     Dates: start: 20050118, end: 20050303

REACTIONS (4)
  - BLOOD GLUCOSE INCREASED [None]
  - COLD SWEAT [None]
  - DEPRESSED LEVEL OF CONSCIOUSNESS [None]
  - HYPOGLYCAEMIA [None]
